FAERS Safety Report 10267301 (Version 2)
Quarter: 2017Q3

REPORT INFORMATION
  Report Type: Report from Study
  Country: US (occurrence: US)
  Receive Date: 20140630
  Receipt Date: 20170915
  Transmission Date: 20171127
  Serious: Yes (Hospitalization, Other)
  Sender: FDA-Public Use
  Company Number: US-SA-2014SA085913

PATIENT
  Age: 43 Year
  Sex: Male

DRUGS (1)
  1. FABRAZYME [Suspect]
     Active Substance: AGALSIDASE BETA
     Indication: FABRY^S DISEASE
     Dosage: DOSE: 70.00?FREQUENCY: Q2
     Route: 041
     Dates: start: 20120515

REACTIONS (5)
  - Muscle disorder [Unknown]
  - Hypertension [Unknown]
  - End stage renal disease [Not Recovered/Not Resolved]
  - Blood potassium abnormal [Unknown]
  - Pruritus [Not Recovered/Not Resolved]

NARRATIVE: CASE EVENT DATE: 20160516
